FAERS Safety Report 5510473-9 (Version None)
Quarter: 2007Q4

REPORT INFORMATION
  Report Type: 
  Country: None (occurrence: None)
  Receive Date: 20071108
  Receipt Date: 20071025
  Transmission Date: 20080405
  Serious: Yes (Life-Threatening, Hospitalization)
  Sender: FDA-Public Use
  Company Number: IT-GENENTECH-248817

PATIENT
  Sex: Male
  Weight: 92 kg

DRUGS (4)
  1. BEVACIZUMAB [Suspect]
     Indication: METASTATIC RENAL CELL CARCINOMA
     Dosage: 10 MG, Q15
     Route: 042
     Dates: start: 20060828
  2. GEMCITABINE [Suspect]
     Indication: METASTATIC RENAL CELL CARCINOMA
     Dosage: 1000 MG/M2, UNK
  3. FLUOROURACIL [Suspect]
     Indication: METASTATIC RENAL CELL CARCINOMA
     Dosage: 1040 MG, UNK
  4. ZOMETA [Concomitant]
     Indication: DRUG USE FOR UNKNOWN INDICATION
     Dates: start: 20060727

REACTIONS (1)
  - ACUTE MYELOID LEUKAEMIA [None]
